FAERS Safety Report 20949305 (Version 5)
Quarter: 2024Q1

REPORT INFORMATION
  Report Type: Report from Study
  Country: BR (occurrence: BR)
  Receive Date: 20220613
  Receipt Date: 20240313
  Transmission Date: 20240410
  Serious: Yes (Disabling, Other)
  Sender: FDA-Public Use
  Company Number: BR-ABBVIE-22K-020-4425695-00

PATIENT
  Age: 65 Year
  Sex: Female
  Weight: 80 kg

DRUGS (7)
  1. HUMIRA [Suspect]
     Active Substance: ADALIMUMAB
     Indication: Rheumatoid arthritis
     Dosage: FORM STRENGTH 40 MILLIGRAM?3 TIMES A WEEK
     Route: 058
     Dates: start: 2021
  2. HUMIRA [Suspect]
     Active Substance: ADALIMUMAB
     Dosage: FORM STRENGTH 40 MILLIGRAM?3 TIMES A WEEK
     Route: 058
     Dates: start: 2021
  3. METHOTREXATE [Suspect]
     Active Substance: METHOTREXATE
     Indication: Product used for unknown indication
     Route: 065
  4. DEFLAZACORT [Concomitant]
     Active Substance: DEFLAZACORT
     Indication: Product used for unknown indication
     Dosage: 12 MILLIGRAM
  5. DEFLAZACORT [Concomitant]
     Active Substance: DEFLAZACORT
     Indication: Product used for unknown indication
     Dosage: 6 MILLIGRAM
  6. AMLODIPINE BESYLATE [Concomitant]
     Active Substance: AMLODIPINE BESYLATE
     Indication: Blood pressure management
  7. FOLIC ACID [Concomitant]
     Active Substance: FOLIC ACID
     Indication: Product used for unknown indication

REACTIONS (21)
  - Dysstasia [Recovering/Resolving]
  - Movement disorder [Recovering/Resolving]
  - Mobility decreased [Recovering/Resolving]
  - Drug ineffective [Not Recovered/Not Resolved]
  - Loss of personal independence in daily activities [Recovering/Resolving]
  - Therapeutic product effect incomplete [Unknown]
  - Asthmatic crisis [Not Recovered/Not Resolved]
  - Weight decreased [Recovered/Resolved]
  - Cyst [Recovering/Resolving]
  - Synovial cyst [Recovering/Resolving]
  - Therapeutic response shortened [Unknown]
  - Therapeutic response shortened [Not Recovered/Not Resolved]
  - Inflammation [Recovering/Resolving]
  - Arthritis [Recovering/Resolving]
  - Pain in extremity [Recovering/Resolving]
  - Neck pain [Recovering/Resolving]
  - Rhinorrhoea [Recovering/Resolving]
  - Peripheral swelling [Recovering/Resolving]
  - Rheumatoid arthritis [Recovering/Resolving]
  - COVID-19 [Recovered/Resolved with Sequelae]
  - Joint swelling [Recovering/Resolving]

NARRATIVE: CASE EVENT DATE: 20220201
